FAERS Safety Report 7321672-8 (Version None)
Quarter: 2011Q1

REPORT INFORMATION
  Report Type: 
  Country: None (occurrence: None)
  Receive Date: 20110216
  Receipt Date: 20110202
  Transmission Date: 20110831
  Serious: Yes (Other)
  Sender: FDA-Public Use
  Company Number: 013902

PATIENT
  Age: 45 Year
  Sex: Male

DRUGS (1)
  1. MACUGEN [Suspect]
     Dosage: 3 INTRAVITREAL INJECTIONS, 6 WEEKS APART, INTRAOCULAR

REACTIONS (1)
  - RETINAL ARTERY OCCLUSION [None]
